FAERS Safety Report 6177178-5 (Version None)
Quarter: 2009Q2

REPORT INFORMATION
  Report Type: 
  Country: None (occurrence: None)
  Receive Date: 20090430
  Receipt Date: 20090430
  Transmission Date: 20091009
  Serious: Yes (Life-Threatening, Hospitalization)
  Sender: FDA-Public Use
  Company Number: None

PATIENT
  Age: 68 Year
  Sex: Female
  Weight: 88.7 kg

DRUGS (3)
  1. HEPARIN [Suspect]
     Indication: DEEP VEIN THROMBOSIS
     Dosage: 10000U CI IV
     Route: 042
     Dates: start: 20090421, end: 20090427
  2. HEPARIN [Suspect]
     Indication: PULMONARY EMBOLISM
     Dosage: 10000U CI IV
     Route: 042
     Dates: start: 20090421, end: 20090427
  3. ENOXAPARIN SODIUM [Suspect]
     Dosage: 95MG BID IM
     Route: 030
     Dates: start: 20090427, end: 20090428

REACTIONS (1)
  - PLATELET COUNT DECREASED [None]
